FAERS Safety Report 10085401 (Version 1)
Quarter: 2014Q2

REPORT INFORMATION
  Report Type: Spontaneous
  Country: GB (occurrence: GB)
  Receive Date: 20140418
  Receipt Date: 20140418
  Transmission Date: 20141212
  Serious: Yes (Death, Other)
  Sender: FDA-Public Use
  Company Number: PHHY2014GB043595

PATIENT
  Sex: 0

DRUGS (1)
  1. DIGOXIN [Suspect]
     Indication: TACHYCARDIA FOETAL
     Route: 064

REACTIONS (4)
  - Foetal death [Fatal]
  - Hydrops foetalis [Unknown]
  - Ascites [Unknown]
  - Foetal exposure during pregnancy [Unknown]
